FAERS Safety Report 15069770 (Version 1)
Quarter: 2018Q2

REPORT INFORMATION
  Report Type: Report from Study
  Country: US (occurrence: US)
  Receive Date: 20180626
  Receipt Date: 20180626
  Transmission Date: 20180711
  Serious: No
  Sender: FDA-Public Use
  Company Number: US-AMGEN-USASP2013086125

PATIENT
  Age: 53 Year
  Sex: Female

DRUGS (24)
  1. PRILOSEC [Concomitant]
     Active Substance: OMEPRAZOLE MAGNESIUM
     Dosage: 20 MG, 1 IN 1 AS REQUIRED
     Route: 048
  2. ONDANSETRON [Concomitant]
     Active Substance: ONDANSETRON
     Indication: NAUSEA
     Dosage: 8 MG, 1 IN 1 AS REQUIRED
     Route: 048
  3. ZOLPIDEM                           /00914902/ [Concomitant]
     Active Substance: ZOLPIDEM\ZOLPIDEM TARTRATE
     Dosage: 10 MG, 1 IN 1 D
     Route: 048
  4. NEULASTA [Suspect]
     Active Substance: PEGFILGRASTIM
     Indication: COLON CANCER
     Dosage: 6 MG, 1 IN 1 AS REQUIRED
     Route: 042
  5. ALOXI [Concomitant]
     Active Substance: PALONOSETRON HYDROCHLORIDE
     Dosage: 0.25 MG, 1 IN 1 CYCLICAL
     Route: 042
  6. FENOFIBRATE. [Concomitant]
     Active Substance: FENOFIBRATE
     Dosage: 40 MG, 1 IN 1 D
     Route: 048
  7. LISINOPRIL. [Concomitant]
     Active Substance: LISINOPRIL
     Dosage: 30 MG, 1 IN 1 D
     Route: 048
  8. AVASTIN [Suspect]
     Active Substance: BEVACIZUMAB
     Indication: COLON CANCER
     Dosage: UNK, 1 IN 1 CYCLIC
     Route: 042
  9. OXALIPLATIN. [Concomitant]
     Active Substance: OXALIPLATIN
     Dosage: 85 MG/M2, 1 IN 1 CYCLICAL
     Route: 042
  10. LEVOTHYROXINE                      /00068002/ [Concomitant]
     Active Substance: LEVOTHYROXINE
     Dosage: 175 MUG, 1 IN 1 D
     Route: 048
  11. NACL [Concomitant]
     Active Substance: SODIUM CHLORIDE
     Dosage: 250 UNK, UNK
  12. DEXAMETHASONE. [Concomitant]
     Active Substance: DEXAMETHASONE
     Dosage: 12 MG, 1 IN1 CYCLICAL
     Route: 042
  13. LEUCOVORIN                         /00566702/ [Concomitant]
     Active Substance: LEUCOVORIN
     Dosage: 400 MG/M2, 1 IN 1 CYCLICAL
     Route: 042
  14. SANCUSO [Concomitant]
     Active Substance: GRANISETRON
     Dosage: 3.1 MG, 1 IN 1 D
     Route: 062
  15. MAGNESIUM SULFATE. [Concomitant]
     Active Substance: MAGNESIUM SULFATE
     Dosage: 1 G, 1 IN 1 AS REQUIRED
     Route: 042
  16. CALCIUM GLUCONATE. [Concomitant]
     Active Substance: CALCIUM GLUCONATE
     Dosage: 1 G, 1 IN 1 AS REQUIRED
     Route: 042
  17. EFFEXOR [Concomitant]
     Active Substance: VENLAFAXINE HYDROCHLORIDE
     Dosage: 75 MG, 2 IN 1 D
     Route: 048
  18. REGORAFENIB. [Concomitant]
     Active Substance: REGORAFENIB
     Dosage: 40 MG, 4 IN 1 D
     Route: 048
  19. XELODA [Suspect]
     Active Substance: CAPECITABINE
     Indication: COLON CANCER
     Dosage: UNK
     Route: 065
  20. ALTEPLASE. [Suspect]
     Active Substance: ALTEPLASE
     Indication: COLON CANCER
     Dosage: 2 MG, 1 IN 1 AS REQUIRED
     Route: 065
  21. FLUOROURACIL. [Concomitant]
     Active Substance: FLUOROURACIL
     Dosage: 400 MG/M2, 1 IN 1 CYCLICAL
     Route: 042
  22. FLUOROURACIL. [Concomitant]
     Active Substance: FLUOROURACIL
     Dosage: 2400 MG/M2, 1 IN 1 CYCLICAL
     Route: 042
  23. EMEND [Concomitant]
     Active Substance: APREPITANT
     Dosage: 150 MG, 1 IN 1 CYCLICAL
     Route: 042
  24. CARAFATE [Concomitant]
     Active Substance: SUCRALFATE
     Dosage: 100 MG, 2 IN 1 AS REQUIRED
     Route: 048

REACTIONS (4)
  - Nausea [Not Recovered/Not Resolved]
  - Neutropenia [Unknown]
  - Rash [Not Recovered/Not Resolved]
  - Vomiting [Not Recovered/Not Resolved]
